FAERS Safety Report 7655848-7 (Version None)
Quarter: 2011Q3

REPORT INFORMATION
  Report Type: 
  Country: None (occurrence: None)
  Receive Date: 20110804
  Receipt Date: 20110727
  Transmission Date: 20111222
  Serious: Yes (Hospitalization, Other)
  Sender: FDA-Public Use
  Company Number: US-ABBOTT-11P-163-0842064-00

PATIENT
  Sex: Female
  Weight: 79.45 kg

DRUGS (26)
  1. CYMBALTA [Concomitant]
     Indication: PAIN MANAGEMENT
  2. COUMADIN [Concomitant]
     Indication: ANTIPHOSPHOLIPID SYNDROME
  3. PLAQUENIL [Concomitant]
     Indication: SYSTEMIC LUPUS ERYTHEMATOSUS
  4. VITAMIN D [Concomitant]
     Indication: VITAMIN SUPPLEMENTATION
  5. LEUKOVORIN CALCIUM [Concomitant]
     Indication: PRODUCT USED FOR UNKNOWN INDICATION
  6. DICYCLOMINE [Concomitant]
     Indication: IRRITABLE BOWEL SYNDROME
  7. ADVAIR DISKUS 100/50 [Concomitant]
     Indication: ASTHMA
  8. TIZANIDINE HCL [Concomitant]
     Indication: MUSCLE RELAXANT THERAPY
  9. PLAQUENIL [Concomitant]
     Indication: RHEUMATOID ARTHRITIS
  10. HUMIRA [Suspect]
     Indication: RHEUMATOID ARTHRITIS
     Dates: start: 20100801, end: 20100901
  11. CYMBALTA [Concomitant]
     Indication: NEUROPATHY PERIPHERAL
  12. PREDNISONE [Concomitant]
     Indication: SYSTEMIC LUPUS ERYTHEMATOSUS
  13. PROAIR HFA [Concomitant]
     Indication: ASTHMA
  14. METHOTREXATE [Concomitant]
     Indication: RHEUMATOID ARTHRITIS
  15. PREDNISONE [Concomitant]
     Indication: RHEUMATOID ARTHRITIS
  16. PRIMIDONE [Concomitant]
     Indication: TREMOR
  17. FOLIC ACID [Concomitant]
     Indication: VITAMIN SUPPLEMENTATION
  18. TRAMADOL HCL [Concomitant]
     Indication: PAIN
  19. VITAMIN B-12 [Concomitant]
     Indication: VITAMIN SUPPLEMENTATION
  20. HUMIRA [Suspect]
     Indication: SYSTEMIC LUPUS ERYTHEMATOSUS
  21. OMEPRAZOLE [Concomitant]
     Indication: PROPHYLAXIS
  22. PROAIR HFA [Concomitant]
     Indication: CHRONIC OBSTRUCTIVE PULMONARY DISEASE
  23. HUMIRA [Suspect]
     Indication: RHEUMATOID ARTHRITIS
     Dates: start: 20100901, end: 20110301
  24. HUMIRA [Suspect]
     Indication: SYSTEMIC LUPUS ERYTHEMATOSUS
     Dates: start: 20110701
  25. OMEPRAZOLE [Concomitant]
     Indication: GASTRIC DISORDER
  26. DEPAKOTE [Concomitant]
     Indication: TREMOR

REACTIONS (20)
  - NAUSEA [None]
  - INJECTION SITE PAIN [None]
  - URINARY TRACT DISORDER [None]
  - RASH [None]
  - BLOOD PRESSURE INCREASED [None]
  - SENSATION OF PRESSURE [None]
  - ASTHENIA [None]
  - PALPITATIONS [None]
  - URINARY TRACT INFECTION [None]
  - ARTERIOSPASM CORONARY [None]
  - BACTERIAL TEST POSITIVE [None]
  - POLLAKIURIA [None]
  - PNEUMONIA [None]
  - URINARY INCONTINENCE [None]
  - MICTURITION URGENCY [None]
  - WHITE BLOOD CELL COUNT INCREASED [None]
  - FATIGUE [None]
  - ARTHRITIS [None]
  - CORONARY ARTERY OCCLUSION [None]
  - CHEST PAIN [None]
